FAERS Safety Report 7268070-3 (Version None)
Quarter: 2011Q1

REPORT INFORMATION
  Report Type: 
  Country: None (occurrence: None)
  Receive Date: 20110124
  Receipt Date: 20110111
  Transmission Date: 20110831
  Serious: Yes (Disabling, Other)
  Sender: FDA-Public Use
  Company Number: UK-ACCORD-002494

PATIENT
  Age: 71 Year
  Sex: Male

DRUGS (6)
  1. APOREX (APOREX) [Concomitant]
  2. PROPOXYPHENE HYDROCHLORIDE(PROPOXYPHENE HYDROCHLORIDE) [Concomitant]
  3. SIMVASTATIN [Suspect]
     Indication: HYPERCHOLESTEROLAEMIA
     Dosage: 10.00-MG-1.00 PER 1.00DAYS, ORAL
     Route: 048
     Dates: start: 20031212, end: 20060322
  4. ASPIRIN [Concomitant]
  5. ACETAMINOPHEN [Concomitant]
  6. DOTHIEPIN HYDROCHLORIDE [Concomitant]

REACTIONS (9)
  - IMPAIRED WORK ABILITY [None]
  - INTENTIONAL OVERDOSE [None]
  - TRANSIENT ISCHAEMIC ATTACK [None]
  - ALOPECIA [None]
  - SUICIDE ATTEMPT [None]
  - TRANSIENT GLOBAL AMNESIA [None]
  - ERECTILE DYSFUNCTION [None]
  - CEREBROVASCULAR DISORDER [None]
  - SENILE DEMENTIA [None]
